FAERS Safety Report 5930691-5 (Version None)
Quarter: 2008Q4

REPORT INFORMATION
  Report Type: 
  Country: None (occurrence: None)
  Receive Date: 20081024
  Receipt Date: 20081024
  Transmission Date: 20090506
  Serious: Yes (Other)
  Sender: FDA-Public Use
  Company Number: None

PATIENT
  Age: 70 Year
  Sex: Male
  Weight: 103.4201 kg

DRUGS (1)
  1. TAXOL [Suspect]
     Indication: NON-SMALL CELL LUNG CANCER
     Dosage: 115MG , QWEEK IV
     Route: 042
     Dates: start: 20081023

REACTIONS (3)
  - CHEST PAIN [None]
  - ERYTHEMA [None]
  - NAUSEA [None]
